FAERS Safety Report 9441853 (Version 1)
Quarter: 2013Q3

REPORT INFORMATION
  Report Type: Spontaneous
  Country: GB (occurrence: None)
  Receive Date: 20130801
  Receipt Date: 20130801
  Transmission Date: 20140515
  Serious: Yes (Hospitalization, Other)
  Sender: FDA-Public Use
  Company Number: GER/UKI/13/0033249

PATIENT
  Age: 23 Year
  Sex: Female
  Weight: 48 kg

DRUGS (3)
  1. SERTRALINE (SERTRALINE) [Suspect]
     Indication: DEPRESSION
     Route: 048
     Dates: start: 20120824, end: 20130704
  2. TRAMADOL [Suspect]
     Indication: PRODUCT USED FOR UNKNOWN INDICATION
     Dates: start: 20130320
  3. ASPIRIN [Suspect]
     Indication: PRODUCT USED FOR UNKNOWN INDICATION
     Dates: start: 20130320

REACTIONS (3)
  - Hepatitis acute [None]
  - Intentional overdose [None]
  - Drug level increased [None]
